FAERS Safety Report 6269268-3 (Version None)
Quarter: 2009Q3

REPORT INFORMATION
  Report Type: 
  Country: None (occurrence: None)
  Receive Date: 20090715
  Receipt Date: 20090706
  Transmission Date: 20100115
  Serious: No
  Sender: FDA-Public Use
  Company Number: US-B.I. PHARMACEUTICALS,INC./RIDGEFIELD-2009-BP-08060BP

PATIENT
  Sex: Female

DRUGS (6)
  1. SPIRIVA [Suspect]
     Indication: CHRONIC OBSTRUCTIVE PULMONARY DISEASE
  2. COMBIVENT [Concomitant]
     Indication: CHRONIC OBSTRUCTIVE PULMONARY DISEASE
  3. COMBIVENT [Concomitant]
     Indication: DYSPNOEA
  4. ADVAIR DISKUS 100/50 [Concomitant]
     Indication: DYSPNOEA
  5. ALBUTEROL SULFATE [Concomitant]
     Indication: DYSPNOEA
  6. OTHER PRESCRIPTION MEDICATION [Concomitant]
     Indication: DYSPNOEA

REACTIONS (1)
  - URTICARIA [None]
